FAERS Safety Report 20878811 (Version 2)
Quarter: 2022Q3

REPORT INFORMATION
  Report Type: Spontaneous
  Country: US (occurrence: None)
  Receive Date: 20220526
  Receipt Date: 20220817
  Transmission Date: 20221027
  Serious: Yes (Hospitalization)
  Sender: FDA-Public Use
  Company Number: US-ROCHE-3102851

PATIENT
  Sex: Female
  Weight: 45 kg

DRUGS (9)
  1. VALCYTE [Suspect]
     Active Substance: VALGANCICLOVIR HYDROCHLORIDE
     Indication: Product used for unknown indication
     Route: 065
  2. FERRIPROX [Suspect]
     Active Substance: DEFERIPRONE
     Indication: Iron metabolism disorder
     Route: 048
     Dates: start: 20210728
  3. FOLIC ACID [Concomitant]
     Active Substance: FOLIC ACID
  4. ERGOCALCIFEROL [Concomitant]
     Active Substance: ERGOCALCIFEROL
  5. LEVOTHYROXINE [Concomitant]
     Active Substance: LEVOTHYROXINE
  6. MAGNESIUM [Concomitant]
     Active Substance: MAGNESIUM
  7. POTASSIUM CHLORIDE [Concomitant]
     Active Substance: POTASSIUM CHLORIDE
  8. PROGRAF [Concomitant]
     Active Substance: TACROLIMUS
  9. PREVYMIS [Concomitant]
     Active Substance: LETERMOVIR

REACTIONS (3)
  - White blood cell count decreased [Recovered/Resolved]
  - Platelet count decreased [Recovered/Resolved]
  - Cytomegalovirus infection [Recovered/Resolved]
